FAERS Safety Report 15429570 (Version 2)
Quarter: 2018Q4

REPORT INFORMATION
  Report Type: Report from Study
  Country: US (occurrence: US)
  Receive Date: 20180926
  Receipt Date: 20181001
  Transmission Date: 20190204
  Serious: Yes (Hospitalization, Other)
  Sender: FDA-Public Use
  Company Number: US-PFIZER INC-2018380339

PATIENT
  Age: 75 Year
  Sex: Female

DRUGS (18)
  1. APIXABAN [Suspect]
     Active Substance: APIXABAN
     Indication: CEREBROVASCULAR ACCIDENT PROPHYLAXIS
     Dosage: UNK
     Route: 065
  2. VITAMIN B COMPLEX [Concomitant]
     Active Substance: CYANOCOBALAMIN\DEXPANTHENOL\NIACINAMIDE\PYRIDOXINE HYDROCHLORIDE\RIBOFLAVIN 5^-PHOSPHATE SODIUM\THIAMINE HYDROCHLORIDE\VITAMIN B COMPLEX
     Dosage: UNK
  3. SUNITINIB MALATE. [Suspect]
     Active Substance: SUNITINIB MALATE
     Dosage: 40 MG, 1X/DAY
  4. CARDIZEM [Concomitant]
     Active Substance: DILTIAZEM HYDROCHLORIDE
     Dosage: UNK
  5. CRANBERRY. [Concomitant]
     Active Substance: CRANBERRY
     Dosage: UNK
  6. CABOMETYX [Suspect]
     Active Substance: CABOZANTINIB S-MALATE
     Indication: RENAL CANCER
     Dosage: 60 MG, 1X/DAY
     Route: 048
     Dates: start: 20170927, end: 20180124
  7. VITAMIN D [Concomitant]
     Active Substance: CHOLECALCIFEROL
     Dosage: UNK
  8. COLACE [Concomitant]
     Active Substance: DOCUSATE SODIUM
     Dosage: UNK
  9. HYDRALAZINE [Concomitant]
     Active Substance: HYDRALAZINE HYDROCHLORIDE
     Dosage: UNK
  10. AMLODIPINE [Concomitant]
     Active Substance: AMLODIPINE BESYLATE
     Dosage: UNK
  11. SENNA [Concomitant]
     Active Substance: SENNA LEAF\SENNOSIDES\SENNOSIDES A AND B
     Dosage: UNK
  12. CABOMETYX [Suspect]
     Active Substance: CABOZANTINIB S-MALATE
     Dosage: 40 MG, 1X/DAY
     Dates: start: 20180309, end: 20180703
  13. ATENOLOL. [Concomitant]
     Active Substance: ATENOLOL
     Dosage: UNK
  14. ALOE VERA [Concomitant]
     Active Substance: ALOE VERA LEAF
     Dosage: UNK
  15. PROMETHAZINE [Concomitant]
     Active Substance: PROMETHAZINE\PROMETHAZINE HYDROCHLORIDE
     Dosage: UNK
  16. XGEVA [Concomitant]
     Active Substance: DENOSUMAB
     Dosage: UNK
  17. CABOMETYX [Suspect]
     Active Substance: CABOZANTINIB S-MALATE
     Indication: RENAL CANCER
     Dosage: 60 MG, 1X/DAY
     Route: 048
  18. OXYCONTIN [Concomitant]
     Active Substance: OXYCODONE HYDROCHLORIDE
     Dosage: UNK

REACTIONS (36)
  - Abdominal pain lower [Unknown]
  - Hypertension [Unknown]
  - Blister [Unknown]
  - Colitis [Recovered/Resolved]
  - Cystitis [Recovered/Resolved]
  - Haemorrhoids [Unknown]
  - Contusion [Unknown]
  - Food intolerance [Recovering/Resolving]
  - Tachycardia [Recovering/Resolving]
  - Inflammatory bowel disease [Recovered/Resolved]
  - Cancer pain [Recovering/Resolving]
  - Stomatitis [Unknown]
  - Mesenteric artery stenosis [Unknown]
  - Atrial fibrillation [Recovering/Resolving]
  - Gastrointestinal disorder [Unknown]
  - Vomiting [Recovering/Resolving]
  - Clostridium difficile colitis [Unknown]
  - Traumatic fracture [Unknown]
  - Palpitations [Unknown]
  - Rectal haemorrhage [Recovered/Resolved]
  - Pleural effusion [Unknown]
  - Road traffic accident [Unknown]
  - Electrolyte imbalance [Unknown]
  - Polyp [Unknown]
  - Haematochezia [Recovered/Resolved]
  - Hiatus hernia [Unknown]
  - Mucosal inflammation [Unknown]
  - Chills [Unknown]
  - Bacterial infection [Unknown]
  - Decreased appetite [Recovering/Resolving]
  - Diarrhoea [Recovering/Resolving]
  - Melaena [Recovered/Resolved]
  - Abdominal pain upper [Unknown]
  - Nausea [Unknown]
  - Abdominal pain [Recovering/Resolving]
  - Back pain [Unknown]

NARRATIVE: CASE EVENT DATE: 2018
